FAERS Safety Report 5236112-2 (Version None)
Quarter: 2007Q1

REPORT INFORMATION
  Report Type: 
  Country: None (occurrence: None)
  Receive Date: 20061208
  Receipt Date: 20060503
  Transmission Date: 20070707
  Serious: Yes (Other)
  Sender: FDA-Public Use
  Company Number: 2006UW08618

PATIENT
  Age: 55 Year
  Sex: Female
  Weight: 74.842 kg

DRUGS (7)
  1. CRESTOR [Suspect]
     Indication: BLOOD CHOLESTEROL INCREASED
     Dosage: 5 MG DAILY PO
     Route: 048
     Dates: start: 20060401
  2. DILANTIN [Suspect]
     Dosage: 100 MG
  3. CELONTIN [Concomitant]
  4. MYSOLINE [Concomitant]
  5. FOSAMAX [Concomitant]
  6. OSCAL [Concomitant]
  7. MSN [Concomitant]

REACTIONS (5)
  - DRUG INTERACTION [None]
  - FATIGUE [None]
  - FEELING ABNORMAL [None]
  - SOMNOLENCE [None]
  - STUPOR [None]
